FAERS Safety Report 11346946 (Version 1)
Quarter: 2015Q3

REPORT INFORMATION
  Report Type: Spontaneous
  Country: US (occurrence: US)
  Receive Date: 20150803
  Receipt Date: 20150803
  Transmission Date: 20151125
  Serious: Yes (Other)
  Sender: FDA-Public Use
  Company Number: US-ELI_LILLY_AND_COMPANY-US201102003220

PATIENT
  Sex: Female
  Weight: 70.3 kg

DRUGS (11)
  1. ZYPREXA [Suspect]
     Active Substance: OLANZAPINE
     Dosage: 5 MG, DAILY (1/D)
     Dates: start: 201004
  2. ZYPREXA [Suspect]
     Active Substance: OLANZAPINE
     Dosage: 7.5 MG, DAILY (1/D)
  3. LITHIUM. [Concomitant]
     Active Substance: LITHIUM
  4. DIOVAN [Concomitant]
     Active Substance: VALSARTAN
  5. PRISTIQ EXTENDED RELEASE [Concomitant]
     Active Substance: DESVENLAFAXINE SUCCINATE
  6. TRILIPIX [Concomitant]
     Active Substance: FENOFIBRIC ACID
  7. KLONOPIN [Concomitant]
     Active Substance: CLONAZEPAM
  8. AMLODIPINE [Concomitant]
     Active Substance: AMLODIPINE BESYLATE
  9. BABY ASPIRIN [Concomitant]
     Active Substance: ASPIRIN
  10. ZYPREXA [Suspect]
     Active Substance: OLANZAPINE
     Indication: BIPOLAR DISORDER
     Dates: end: 200910
  11. LAMICTAL [Concomitant]
     Active Substance: LAMOTRIGINE

REACTIONS (3)
  - Increased appetite [Unknown]
  - Diabetes mellitus [Unknown]
  - Weight increased [Unknown]
